FAERS Safety Report 12537735 (Version 2)
Quarter: 2016Q3

REPORT INFORMATION
  Report Type: Report from Study
  Country: NL (occurrence: NL)
  Receive Date: 20160707
  Receipt Date: 20160930
  Transmission Date: 20161109
  Serious: Yes (Hospitalization, Other)
  Sender: FDA-Public Use
  Company Number: NL-ABBVIE-16K-114-1668859-00

PATIENT
  Sex: Female
  Weight: 63 kg

DRUGS (1)
  1. DUODOPA [Suspect]
     Active Substance: CARBIDOPA\LEVODOPA
     Indication: PARKINSON^S DISEASE
     Dosage: MORNING 6.5, CONTINUOUS 4, EXTRA 1
     Route: 050
     Dates: start: 20120719

REACTIONS (2)
  - Spinal compression fracture [Recovered/Resolved]
  - Spinal column stenosis [Recovered/Resolved]
